FAERS Safety Report 9407749 (Version 1)
Quarter: 2013Q3

REPORT INFORMATION
  Report Type: Spontaneous
  Country: US (occurrence: US)
  Receive Date: 20130718
  Receipt Date: 20130718
  Transmission Date: 20140515
  Serious: No
  Sender: FDA-Public Use
  Company Number: US-PFIZER INC-2013208184

PATIENT
  Sex: Male

DRUGS (2)
  1. EFFEXOR XR [Suspect]
     Indication: MAJOR DEPRESSION
     Dosage: UNK
  2. PROTONIX [Suspect]
     Dosage: UNK

REACTIONS (4)
  - Back disorder [Unknown]
  - Thinking abnormal [Unknown]
  - Malaise [Unknown]
  - Headache [Unknown]
